FAERS Safety Report 25413724 (Version 3)
Quarter: 2025Q3

REPORT INFORMATION
  Report Type: Spontaneous
  Country: US (occurrence: US)
  Receive Date: 20250609
  Receipt Date: 20250816
  Transmission Date: 20251020
  Serious: No
  Sender: ALEXION PHARMACEUTICALS
  Company Number: US-AstraZeneca-CH-00884348A

PATIENT
  Age: 53 Year
  Weight: 68.038 kg

DRUGS (2)
  1. BRILINTA [Suspect]
     Active Substance: TICAGRELOR
     Indication: Myocardial infarction
     Route: 065
  2. VITAMIN C [Concomitant]
     Active Substance: ASCORBIC ACID
     Route: 065

REACTIONS (5)
  - Anal pruritus [Unknown]
  - Haematospermia [Unknown]
  - Polyp [Unknown]
  - Blood urine present [Unknown]
  - Therapy interrupted [Unknown]
